FAERS Safety Report 9027024 (Version 1)
Quarter: 2013Q1

REPORT INFORMATION
  Report Type: Spontaneous
  Country: ES (occurrence: ES)
  Receive Date: 20130123
  Receipt Date: 20130123
  Transmission Date: 20140127
  Serious: Yes (Other)
  Sender: FDA-Public Use
  Company Number: ES-UCBSA-073710

PATIENT
  Age: 15 Year
  Sex: Male
  Weight: 82 kg

DRUGS (4)
  1. VIMPAT [Suspect]
     Indication: EPILEPSY
     Route: 048
     Dates: start: 20121119
  2. DEPAKINE [Concomitant]
     Indication: EPILEPSY
     Dosage: DAILY DOSE-800MG
  3. TEGRETOL [Concomitant]
     Indication: EPILEPSY
     Dosage: DAILY DOSE-1200 MG
  4. LAMICTAL [Concomitant]
     Indication: EPILEPSY
     Dosage: DAILY DOSE-200 MG

REACTIONS (1)
  - Hypertonia [Recovered/Resolved]
